FAERS Safety Report 5722470-9 (Version None)
Quarter: 2008Q2

REPORT INFORMATION
  Report Type: 
  Country: None (occurrence: None)
  Receive Date: 20080429
  Receipt Date: 20070925
  Transmission Date: 20081010
  Serious: No
  Sender: FDA-Public Use
  Company Number: US-ASTRAZENECA-2007UW20128

PATIENT
  Age: 78 Year
  Sex: Female
  Weight: 73.9 kg

DRUGS (7)
  1. NEXIUM [Suspect]
     Indication: GASTROOESOPHAGEAL REFLUX DISEASE
     Route: 048
     Dates: start: 20020101, end: 20060801
  2. NEXIUM [Suspect]
     Route: 048
  3. BONIVA [Concomitant]
  4. AMLODIPINE [Concomitant]
  5. CALTRATE [Concomitant]
  6. ATENOLOL [Concomitant]
     Route: 048
  7. PREDNISONE [Concomitant]

REACTIONS (2)
  - HERNIA HIATUS REPAIR [None]
  - OSTEOPOROSIS [None]
